FAERS Safety Report 11200800 (Version 2)
Quarter: 2015Q3

REPORT INFORMATION
  Report Type: Spontaneous
  Country: JP (occurrence: JP)
  Receive Date: 20150618
  Receipt Date: 20150707
  Transmission Date: 20151125
  Serious: Yes (Hospitalization)
  Sender: FDA-Public Use
  Company Number: JP-ROCHE-1591857

PATIENT
  Age: 67 Year
  Sex: Female

DRUGS (5)
  1. DECADRON [Concomitant]
     Active Substance: DEXAMETHASONE
     Indication: PROPHYLAXIS
     Route: 048
     Dates: start: 20150407, end: 20150409
  2. PERJETA [Suspect]
     Active Substance: PERTUZUMAB
     Dosage: PERJETA 420MG/14ML?MOST RECENT DOSE RECEIVED ON 20/MAY/2015
     Route: 041
     Dates: start: 20150318
  3. HERCEPTIN [Suspect]
     Active Substance: TRASTUZUMAB
     Dosage: MOST RECENT DOSE RECEIVED ON 20/MAY/2015
     Route: 041
     Dates: start: 20150313
  4. HERCEPTIN [Suspect]
     Active Substance: TRASTUZUMAB
     Indication: BREAST CANCER
     Route: 041
     Dates: start: 20150225, end: 20150225
  5. PERJETA [Suspect]
     Active Substance: PERTUZUMAB
     Indication: BREAST CANCER
     Dosage: PERJETA 420MG/14ML
     Route: 041
     Dates: start: 20150225, end: 20150225

REACTIONS (2)
  - Pneumonia [Recovered/Resolved]
  - Pneumonia aspiration [Recovered/Resolved]

NARRATIVE: CASE EVENT DATE: 20150523
